FAERS Safety Report 9452303 (Version 5)
Quarter: 2014Q1

REPORT INFORMATION
  Report Type: Spontaneous
  Country: US (occurrence: US)
  Receive Date: 20130812
  Receipt Date: 20140117
  Transmission Date: 20141002
  Serious: Yes (Other)
  Sender: FDA-Public Use
  Company Number: US-009507513-1308USA003333

PATIENT
  Age: 55 Year
  Sex: Female

DRUGS (5)
  1. VICTRELIS [Suspect]
     Indication: HEPATITIS C
     Dosage: DOSE 4 (UNITE UNSPECIFIED), Q8H
     Route: 048
     Dates: start: 20130710, end: 20140109
  2. REBETOL [Suspect]
     Indication: HEPATITIS C
     Dosage: DOSE 2 (UNITE UNSPECIFIED), BID
     Route: 048
     Dates: start: 20130612, end: 20140109
  3. PEGASYS [Suspect]
     Indication: HEPATITIS C
     Dosage: 0.5 ML, QW
     Route: 058
     Dates: start: 20130612, end: 20140109
  4. HYDROCHLOROTHIAZIDE [Concomitant]
     Dosage: 1 DAILY
  5. NARCOZEP [Concomitant]
     Dosage: 1 TWICE DAILY

REACTIONS (19)
  - Transfusion [Unknown]
  - Full blood count decreased [Recovering/Resolving]
  - Anaemia [Recovering/Resolving]
  - Dizziness [Unknown]
  - Vision blurred [Recovering/Resolving]
  - White blood cell count decreased [Recovering/Resolving]
  - Viral load decreased [Recovering/Resolving]
  - White blood cell count decreased [Recovering/Resolving]
  - Headache [Recovering/Resolving]
  - Insomnia [Recovering/Resolving]
  - Dry mouth [Recovering/Resolving]
  - Asthenia [Recovering/Resolving]
  - Anaemia [Unknown]
  - Blood potassium decreased [Unknown]
  - Constipation [Unknown]
  - Dehydration [Unknown]
  - Asthenia [Unknown]
  - Decreased appetite [Unknown]
  - Insomnia [Unknown]
